FAERS Safety Report 19358281 (Version 2)
Quarter: 2021Q2

REPORT INFORMATION
  Report Type: Other
  Country: US (occurrence: US)
  Receive Date: 20210601
  Receipt Date: 20210608
  Transmission Date: 20210717
  Serious: No
  Sender: FDA-Public Use
  Company Number: US-ROCHE-2837431

PATIENT
  Age: 56 Year
  Sex: Female
  Weight: 108.9 kg

DRUGS (5)
  1. HYGROTON [Concomitant]
     Active Substance: CHLORTHALIDONE
  2. OCREVUS [Suspect]
     Active Substance: OCRELIZUMAB
     Dosage: DATE OF TREATMENT: 06/NOV/2018, 24/SEP/2019, 07/OCT/2019, 09/MAR/2020, 24/AUG/2020, 16/MAY/2021
     Route: 042
     Dates: start: 20180516
  3. AMPYRA [Concomitant]
     Active Substance: DALFAMPRIDINE
     Dosage: SUSTAINED RELEASE 12 HOURS
  4. OCREVUS [Suspect]
     Active Substance: OCRELIZUMAB
     Indication: RELAPSING MULTIPLE SCLEROSIS
     Dosage: DATE OF TREATMENT: 17/NOV/2017
     Route: 042
     Dates: start: 20171103
  5. DITROPAN XL [Concomitant]
     Active Substance: OXYBUTYNIN CHLORIDE
     Dosage: CONTROLLED RELEASE

REACTIONS (14)
  - Asthma [Not Recovered/Not Resolved]
  - Asthenia [Unknown]
  - Gastrooesophageal reflux disease [Unknown]
  - Hypertension [Unknown]
  - Abdominal discomfort [Unknown]
  - Blood calcium increased [Unknown]
  - Muscle spasms [Unknown]
  - Genitourinary tract infection [Unknown]
  - Vitamin D deficiency [Unknown]
  - Influenza [Unknown]
  - COVID-19 [Not Recovered/Not Resolved]
  - Hypomagnesaemia [Unknown]
  - Fatigue [Unknown]
  - Oral herpes [Unknown]

NARRATIVE: CASE EVENT DATE: 202010
